FAERS Safety Report 4546503-0 (Version None)
Quarter: 2005Q1

REPORT INFORMATION
  Report Type: 
  Country: None (occurrence: None)
  Receive Date: 20050106
  Receipt Date: 20041230
  Transmission Date: 20050727
  Serious: Yes (Disabling, Other)
  Sender: FDA-Public Use
  Company Number: US-GLAXOSMITHKLINE-A0538841A

PATIENT
  Age: 37 Year
  Sex: Male

DRUGS (4)
  1. LAMICTAL [Suspect]
     Indication: CONVULSION
     Route: 048
     Dates: end: 20041001
  2. DEPAKOTE [Suspect]
     Dates: start: 20041021
  3. KLONOPIN [Concomitant]
  4. NASACORT [Concomitant]

REACTIONS (7)
  - AMNESIA [None]
  - ANTICONVULSANT DRUG LEVEL INCREASED [None]
  - BALANCE DISORDER [None]
  - DIPLOPIA [None]
  - DRUG LEVEL INCREASED [None]
  - PRESCRIBED OVERDOSE [None]
  - VISION BLURRED [None]
